FAERS Safety Report 7407321-9 (Version None)
Quarter: 2011Q2

REPORT INFORMATION
  Report Type: 
  Country: None (occurrence: None)
  Receive Date: 20110411
  Receipt Date: 20110404
  Transmission Date: 20111010
  Serious: Yes (Death, Hospitalization)
  Sender: FDA-Public Use
  Company Number: US-AMGEN-US332506

PATIENT
  Age: 65 Year
  Sex: Male

DRUGS (3)
  1. RITUXIMAB [Concomitant]
  2. NPLATE [Suspect]
     Indication: IDIOPATHIC THROMBOCYTOPENIC PURPURA
     Dosage: 500 A?G/KG, UNK
     Route: 058
     Dates: start: 20090108, end: 20090129
  3. NPLATE [Suspect]
     Dosage: 700 A?G, UNK
     Dates: end: 20110224

REACTIONS (2)
  - CHRONIC LYMPHOCYTIC LEUKAEMIA [None]
  - EMBOLISM ARTERIAL [None]
